FAERS Safety Report 10085965 (Version 1)
Quarter: 2014Q2

REPORT INFORMATION
  Report Type: Spontaneous
  Country: FR (occurrence: FR)
  Receive Date: 20140418
  Receipt Date: 20140418
  Transmission Date: 20141212
  Serious: Yes (Death)
  Sender: FDA-Public Use
  Company Number: FR-BRISTOL-MYERS SQUIBB COMPANY-20606117

PATIENT
  Age: 57 Year
  Sex: Male

DRUGS (3)
  1. HYDREA CAPS [Suspect]
     Indication: ACUTE MYELOID LEUKAEMIA
     Route: 048
     Dates: start: 20131109
  2. ARACYTINE [Suspect]
     Indication: ACUTE MYELOID LEUKAEMIA
     Dates: start: 20131112
  3. CERUBIDINE [Suspect]
     Indication: ACUTE MYELOID LEUKAEMIA
     Route: 042
     Dates: start: 20131112

REACTIONS (3)
  - Febrile bone marrow aplasia [Fatal]
  - Septic shock [Fatal]
  - Acute respiratory distress syndrome [Fatal]
